FAERS Safety Report 5480668-1 (Version None)
Quarter: 2007Q4

REPORT INFORMATION
  Report Type: 
  Country: None (occurrence: None)
  Receive Date: 20071003
  Receipt Date: 20070918
  Transmission Date: 20080405
  Serious: Yes (Other)
  Sender: FDA-Public Use
  Company Number: 2007RR-09980

PATIENT
  Age: 47 Year
  Sex: Female

DRUGS (7)
  1. CLINDAMYCIN HCL [Suspect]
     Indication: TOOTH INFECTION
     Dosage: 300 MG, QID, ORAL; 900 MG, TID, INTRAVENOUS
     Route: 048
  2. PARACETAMOL CAPSULES 500MG (ACETAMNOPHEN/ PARACETAMOL) [Concomitant]
  3. METOPROLOL TARTRATE [Concomitant]
  4. ASPIRIN [Concomitant]
  5. SIMVASTATIN [Concomitant]
  6. NIFEDIPINE [Concomitant]
  7. INSULIN [Concomitant]

REACTIONS (16)
  - ACUTE FEBRILE NEUTROPHILIC DERMATOSIS [None]
  - CONJUNCTIVAL OEDEMA [None]
  - CONJUNCTIVITIS [None]
  - DROOLING [None]
  - DYSPHAGIA [None]
  - LIP EROSION [None]
  - ODYNOPHAGIA [None]
  - PAIN [None]
  - PYREXIA [None]
  - RASH [None]
  - SCAB [None]
  - SKIN LESION [None]
  - SWELLING [None]
  - SWELLING FACE [None]
  - TONGUE ULCERATION [None]
  - TOOTH EXTRACTION [None]
